FAERS Safety Report 20633435 (Version 1)
Quarter: 2022Q1

REPORT INFORMATION
  Report Type: Spontaneous
  Country: FR (occurrence: None)
  Receive Date: 20220324
  Receipt Date: 20220324
  Transmission Date: 20220423
  Serious: Yes (Other)
  Sender: FDA-Public Use
  Company Number: 2022A114545

PATIENT
  Age: 86 Year
  Sex: Male

DRUGS (11)
  1. SYMBICORT [Suspect]
     Active Substance: BUDESONIDE\FORMOTEROL FUMARATE DIHYDRATE
     Indication: Product used for unknown indication
     Dosage: UNKNOWN FREQUENCY UNKNOWN
     Route: 055
     Dates: start: 20210119
  2. LOVENOX [Suspect]
     Active Substance: ENOXAPARIN SODIUM
     Indication: Cardiovascular event prophylaxis
     Route: 058
     Dates: start: 20210125, end: 20210127
  3. FOLIC ACID [Suspect]
     Active Substance: FOLIC ACID
     Indication: Vitamin supplementation
     Route: 048
     Dates: start: 20210120
  4. BISOPROLOL FUMARATE [Suspect]
     Active Substance: BISOPROLOL FUMARATE
     Indication: Atrial flutter
     Dosage: QD
     Route: 065
  5. BISOPROLOL FUMARATE [Suspect]
     Active Substance: BISOPROLOL FUMARATE
     Indication: Atrial flutter
     Route: 048
     Dates: start: 20210120
  6. BISOPROLOL FUMARATE [Suspect]
     Active Substance: BISOPROLOL FUMARATE
     Indication: Atrial flutter
     Dosage: 1
     Route: 048
  7. IOPROMIDE [Suspect]
     Active Substance: IOPROMIDE
     Indication: Scan
     Route: 042
     Dates: start: 20210125, end: 20210125
  8. BUTYLSCOPOLAMINE BROMIDE [Suspect]
     Active Substance: BUTYLSCOPOLAMINE BROMIDE
     Indication: Atrial flutter
     Route: 048
     Dates: start: 20210120
  9. KARDEGIC [Suspect]
     Active Substance: ASPIRIN DL-LYSINE
     Indication: Cardiovascular event prophylaxis
     Route: 048
     Dates: start: 20210121
  10. KARDEGIC [Suspect]
     Active Substance: ASPIRIN DL-LYSINE
     Indication: Cardiovascular event prophylaxis
     Dosage: 1 DF, QD
     Route: 065
  11. APIXABAN [Suspect]
     Active Substance: APIXABAN
     Indication: Cardiovascular event prophylaxis
     Route: 048
     Dates: start: 202101, end: 20210125

REACTIONS (2)
  - Eosinophilia [Unknown]
  - Drug eruption [Unknown]

NARRATIVE: CASE EVENT DATE: 20210127
